FAERS Safety Report 8578954-1 (Version None)
Quarter: 2012Q3

REPORT INFORMATION
  Report Type: 
  Country: None (occurrence: None)
  Receive Date: 20120726
  Receipt Date: 20120711
  Transmission Date: 20120928
  Serious: Yes (Disabling)
  Sender: FDA-Public Use
  Company Number: E2B_00000289

PATIENT
  Age: 75 Year
  Sex: Female
  Weight: 94.8018 kg

DRUGS (6)
  1. CARVEDILOL [Concomitant]
  2. ALLOPURINOL [Concomitant]
  3. PREVACID [Concomitant]
  4. QUINAPRIL HYDROCHLORIDE [Suspect]
     Indication: HYPERTENSION
     Dosage: 40 MG (40 MG,1 IN 1 D),PER ORAL
     Route: 048
     Dates: start: 20120101
  5. CLONIDINE [Concomitant]
  6. VITAMIN D [Concomitant]

REACTIONS (5)
  - DRUG INEFFECTIVE [None]
  - BLINDNESS UNILATERAL [None]
  - CEREBROVASCULAR ACCIDENT [None]
  - HYPERTENSION [None]
  - EYE DISORDER [None]
